FAERS Safety Report 16172654 (Version 2)
Quarter: 2019Q2

REPORT INFORMATION
  Report Type: Report from Study
  Country: JP (occurrence: JP)
  Receive Date: 20190409
  Receipt Date: 20190521
  Transmission Date: 20190711
  Serious: Yes (Hospitalization)
  Sender: FDA-Public Use
  Company Number: JP-GLAXOSMITHKLINE-JP2018JPN177511

PATIENT
  Age: 59 Year
  Sex: Female
  Weight: 58 kg

DRUGS (18)
  1. OLMESARTAN (OLMESARTAN MEDOXOMIL) [Concomitant]
     Dosage: UNK
  2. BAYASPIRIN [Concomitant]
     Active Substance: ASPIRIN
     Indication: THROMBOSIS PROPHYLAXIS
     Dosage: UNK
  3. BELIMUMAB SUBCUTANEOUS [Suspect]
     Active Substance: BELIMUMAB
     Indication: SYSTEMIC LUPUS ERYTHEMATOSUS
     Dosage: 200 MG, WE
     Route: 058
     Dates: start: 20180906, end: 20190122
  4. PREDONINE [Concomitant]
     Active Substance: PREDNISOLONE
     Indication: SYSTEMIC LUPUS ERYTHEMATOSUS
     Dosage: 15 MG, 1D
     Dates: start: 20180828, end: 20180912
  5. PREDONINE [Concomitant]
     Active Substance: PREDNISOLONE
     Dosage: 11 MG, 1D
     Dates: start: 20180927, end: 20181010
  6. PREDONINE [Concomitant]
     Active Substance: PREDNISOLONE
     Dosage: 12.5 MG, 1D
     Dates: start: 20180913, end: 20180926
  7. PLAQUENIL [Concomitant]
     Active Substance: HYDROXYCHLOROQUINE SULFATE
     Indication: SYSTEMIC LUPUS ERYTHEMATOSUS
     Dosage: UNK
  8. ROSUVASTATIN (ROSUVASTATIN CALCIUM) [Concomitant]
     Dosage: UNK
  9. TAKECAB [Concomitant]
     Active Substance: VONOPRAZAN FUMURATE
     Indication: GASTRITIS PROPHYLAXIS
     Dosage: UNK
  10. PREDONINE [Concomitant]
     Active Substance: PREDNISOLONE
     Dosage: 10 MG, 1D
     Dates: start: 20181011, end: 20190121
  11. PREDONINE [Concomitant]
     Active Substance: PREDNISOLONE
     Dosage: 7 MG, 1D
     Dates: start: 20190402
  12. TACROLIMUS. [Concomitant]
     Active Substance: TACROLIMUS
     Indication: SYSTEMIC LUPUS ERYTHEMATOSUS
     Dosage: UNK
  13. DAIPHEN [Concomitant]
     Active Substance: SULFAMETHOXAZOLE\TRIMETHOPRIM
     Indication: INFECTION PROPHYLAXIS
     Dosage: UNK
  14. ALFACALCIDOL [Concomitant]
     Active Substance: ALFACALCIDOL
     Indication: OSTEOPOROSIS PROPHYLAXIS
     Dosage: UNK
  15. PREDONINE [Concomitant]
     Active Substance: PREDNISOLONE
     Dosage: 9 MG, 1D
     Dates: start: 20190122, end: 20190218
  16. PREDONINE [Concomitant]
     Active Substance: PREDNISOLONE
     Dosage: 7.5 MG, 1D
     Dates: start: 20190219, end: 20190401
  17. AMLODIPINE BESILATE [Concomitant]
     Active Substance: AMLODIPINE BESYLATE
     Dosage: UNK
  18. VITANEURIN [Concomitant]
     Indication: SKIN DISORDER PROPHYLAXIS
     Dosage: UNK

REACTIONS (2)
  - Blood immunoglobulin G decreased [Recovered/Resolved]
  - Device failure [Unknown]

NARRATIVE: CASE EVENT DATE: 20180927
